FAERS Safety Report 5597445-3 (Version None)
Quarter: 2007Q4

REPORT INFORMATION
  Report Type: 
  Country: None (occurrence: None)
  Receive Date: 20071221
  Receipt Date: 20070823
  Transmission Date: 20080405
  Serious: No
  Sender: FDA-Public Use
  Company Number: SPV1-2007-03946

PATIENT
  Age: 8 Year
  Sex: Male
  Weight: 27.7 kg

DRUGS (2)
  1. VYVANSE [Suspect]
     Indication: ATTENTION DEFICIT/HYPERACTIVITY DISORDER
     Dosage: 30 MG, 1X/DAY:QD, ORAL ; -20 MG, 1X/DAY:QD, ORAL
     Route: 048
     Dates: start: 20070809, end: 20070822
  2. VYVANSE [Suspect]
     Indication: ATTENTION DEFICIT/HYPERACTIVITY DISORDER
     Dosage: 30 MG, 1X/DAY:QD, ORAL ; -20 MG, 1X/DAY:QD, ORAL
     Route: 048
     Dates: start: 20070823

REACTIONS (8)
  - AGGRESSION [None]
  - DECREASED APPETITE [None]
  - DEPRESSED MOOD [None]
  - DRUG ADMINISTRATION ERROR [None]
  - INITIAL INSOMNIA [None]
  - LISTLESS [None]
  - MOOD SWINGS [None]
  - NAUSEA [None]
